FAERS Safety Report 19381707 (Version 1)
Quarter: 2021Q2

REPORT INFORMATION
  Report Type: Spontaneous
  Country: US (occurrence: US)
  Receive Date: 20210605
  Receipt Date: 20210605
  Transmission Date: 20210717
  Serious: Yes (Hospitalization)
  Sender: FDA-Public Use
  Company Number: None

PATIENT
  Age: 72 Year
  Sex: Female
  Weight: 56.8 kg

DRUGS (3)
  1. LEUCOVORIN CALCIUM. [Suspect]
     Active Substance: LEUCOVORIN CALCIUM
     Dates: end: 20210525
  2. 5FLUOROURACIL (5?FU) [Suspect]
     Active Substance: FLUOROURACIL
     Dates: end: 20210527
  3. ELOXATIN [Suspect]
     Active Substance: OXALIPLATIN
     Dates: end: 20210525

REACTIONS (6)
  - Abdominal discomfort [None]
  - Nausea [None]
  - Pain in extremity [None]
  - Sciatica [None]
  - Diarrhoea [None]
  - Abdominal pain [None]

NARRATIVE: CASE EVENT DATE: 20210527
